FAERS Safety Report 15000455 (Version 1)
Quarter: 2018Q2

REPORT INFORMATION
  Report Type: Spontaneous
  Country: CZ (occurrence: CZ)
  Receive Date: 20180612
  Receipt Date: 20180612
  Transmission Date: 20180711
  Serious: Yes (Hospitalization)
  Sender: FDA-Public Use
  Company Number: CZ-PFIZER INC-2018232849

PATIENT
  Age: 47 Year
  Sex: Male

DRUGS (10)
  1. CYCLOPHOSPHAMIDE. [Suspect]
     Active Substance: CYCLOPHOSPHAMIDE
     Indication: CHEMOTHERAPY
  2. RITUXIMAB. [Suspect]
     Active Substance: RITUXIMAB
     Indication: CHEMOTHERAPY
  3. PREDNISOLONE. [Suspect]
     Active Substance: PREDNISOLONE
     Indication: CHEMOTHERAPY
  4. VINCRISTINE [Suspect]
     Active Substance: VINCRISTINE
     Indication: B-CELL LYMPHOMA STAGE I
     Dosage: UNK, CYCLIC
     Route: 065
     Dates: start: 200808
  5. DOXORUBICIN HCL [Suspect]
     Active Substance: DOXORUBICIN HYDROCHLORIDE
     Indication: B-CELL LYMPHOMA STAGE I
     Dosage: CYCLIC
     Route: 065
     Dates: start: 200808
  6. RITUXIMAB. [Suspect]
     Active Substance: RITUXIMAB
     Indication: B-CELL LYMPHOMA STAGE I
     Dosage: UNK, CYCLIC
     Route: 065
     Dates: start: 200808
  7. PREDNISOLONE. [Suspect]
     Active Substance: PREDNISOLONE
     Indication: B-CELL LYMPHOMA STAGE I
     Dosage: UNK, CYCLIC
     Route: 065
     Dates: start: 200808
  8. CYCLOPHOSPHAMIDE. [Suspect]
     Active Substance: CYCLOPHOSPHAMIDE
     Indication: B-CELL LYMPHOMA STAGE I
     Dosage: UNK, CYCLIC
     Route: 065
     Dates: start: 200808
  9. VINCRISTINE [Suspect]
     Active Substance: VINCRISTINE
     Indication: CHEMOTHERAPY
  10. DOXORUBICIN HCL [Suspect]
     Active Substance: DOXORUBICIN HYDROCHLORIDE
     Indication: CHEMOTHERAPY

REACTIONS (3)
  - Hepatic encephalopathy [Recovered/Resolved]
  - Hepatitis B reactivation [Recovered/Resolved]
  - Acute hepatic failure [Recovered/Resolved]
